FAERS Safety Report 5083812-3 (Version None)
Quarter: 2006Q3

REPORT INFORMATION
  Report Type: 
  Country: None (occurrence: None)
  Receive Date: 20060818
  Receipt Date: 20060412
  Transmission Date: 20061208
  Serious: Yes (Hospitalization)
  Sender: FDA-Public Use
  Company Number: DE-ABBOTT-06P-062-0330660-00

PATIENT
  Sex: Female
  Weight: 70 kg

DRUGS (4)
  1. HUMIRA [Suspect]
     Indication: RHEUMATOID ARTHRITIS
     Route: 058
     Dates: start: 20031215, end: 20051024
  2. HUMIRA [Suspect]
     Route: 058
     Dates: start: 20060219
  3. NONSTEROIDAL ANTIRHEUMATIC [Concomitant]
     Indication: RHEUMATOID ARTHRITIS
  4. PREDNISOLONE [Concomitant]
     Indication: RHEUMATOID ARTHRITIS
     Dosage: 2.5-0.5 MG
     Route: 048

REACTIONS (2)
  - FEMUR FRACTURE [None]
  - MEDICAL DEVICE COMPLICATION [None]
